FAERS Safety Report 7109005-3 (Version None)
Quarter: 2010Q4

REPORT INFORMATION
  Report Type: 
  Country: None (occurrence: None)
  Receive Date: 20101110
  Receipt Date: 20101105
  Transmission Date: 20110411
  Serious: Yes (Other)
  Sender: FDA-Public Use
  Company Number: 2009SP000504

PATIENT
  Age: 48 Year
  Sex: Male
  Weight: 65 kg

DRUGS (3)
  1. PEGINTERFERON ALFA-2B [Suspect]
     Indication: HEPATITIS C
  2. RIBAVIRIN [Suspect]
     Indication: HEPATITIS C
  3. TESTOSTERONE [Suspect]
     Indication: TRANSGENDER HORMONAL THERAPY
     Dosage: 800 MG

REACTIONS (12)
  - AFFECT LABILITY [None]
  - ANAEMIA [None]
  - AREFLEXIA [None]
  - HYPOKALAEMIA [None]
  - IMPAIRED FASTING GLUCOSE [None]
  - INSULIN RESISTANCE [None]
  - LETHARGY [None]
  - LISTLESS [None]
  - QUADRIPARESIS [None]
  - THYROIDITIS [None]
  - THYROTOXIC PERIODIC PARALYSIS [None]
  - WEIGHT DECREASED [None]
